FAERS Safety Report 15768677 (Version 1)
Quarter: 2018Q4

REPORT INFORMATION
  Report Type: Report from Study
  Country: CA (occurrence: CA)
  Receive Date: 20181228
  Receipt Date: 20181228
  Transmission Date: 20190205
  Serious: Yes (Other)
  Sender: FDA-Public Use
  Company Number: CA-BRISTOL-MYERS SQUIBB COMPANY-BMS-2017-119842

PATIENT
  Age: 12 Year
  Sex: Female
  Weight: 60 kg

DRUGS (2)
  1. ABATACEPT [Suspect]
     Active Substance: ABATACEPT
     Indication: RHEUMATOID ARTHRITIS
     Route: 065
  2. ABATACEPT [Suspect]
     Active Substance: ABATACEPT
     Indication: JUVENILE IDIOPATHIC ARTHRITIS
     Dosage: 500 MG, Q4WK
     Route: 042
     Dates: start: 20171219

REACTIONS (27)
  - Headache [Recovered/Resolved]
  - Drug ineffective [Unknown]
  - Mouth ulceration [Recovered/Resolved]
  - Vomiting [Unknown]
  - Urinary tract infection [Recovering/Resolving]
  - Fatigue [Not Recovered/Not Resolved]
  - Fungal infection [Unknown]
  - Prescribed underdose [Unknown]
  - Nasopharyngitis [Recovered/Resolved]
  - Mouth ulceration [Recovering/Resolving]
  - Sinusitis [Unknown]
  - Nausea [Unknown]
  - Ascites [Unknown]
  - Rheumatoid arthritis [Unknown]
  - Influenza [Unknown]
  - Oral pain [Unknown]
  - Erythema [Not Recovered/Not Resolved]
  - Pain in jaw [Not Recovered/Not Resolved]
  - Musculoskeletal stiffness [Not Recovered/Not Resolved]
  - Weight increased [Unknown]
  - Respiratory tract congestion [Unknown]
  - Arthritis [Not Recovered/Not Resolved]
  - Poor venous access [Recovered/Resolved]
  - Bladder pain [Unknown]
  - Haemorrhagic ovarian cyst [Unknown]
  - Oropharyngeal pain [Unknown]
  - Pharyngeal ulceration [Unknown]

NARRATIVE: CASE EVENT DATE: 20171224
